FAERS Safety Report 25230477 (Version 1)
Quarter: 2025Q2

REPORT INFORMATION
  Report Type: Spontaneous
  Country: IT (occurrence: IT)
  Receive Date: 20250423
  Receipt Date: 20250423
  Transmission Date: 20250716
  Serious: Yes (Hospitalization, Other)
  Sender: PFIZER
  Company Number: IT-PFIZER INC-202500082184

PATIENT
  Age: 68 Year
  Sex: Male

DRUGS (6)
  1. VORICONAZOLE [Suspect]
     Active Substance: VORICONAZOLE
     Indication: Candida infection
     Route: 042
  2. VORICONAZOLE [Suspect]
     Active Substance: VORICONAZOLE
     Indication: Intervertebral discitis
  3. ANIDULAFUNGIN [Suspect]
     Active Substance: ANIDULAFUNGIN
     Indication: Candida infection
     Route: 042
  4. ANIDULAFUNGIN [Suspect]
     Active Substance: ANIDULAFUNGIN
     Indication: Intervertebral discitis
  5. AMPHOTERICIN B [Suspect]
     Active Substance: AMPHOTERICIN B
     Indication: Candida infection
     Route: 042
  6. AMPHOTERICIN B [Suspect]
     Active Substance: AMPHOTERICIN B
     Indication: Intervertebral discitis

REACTIONS (1)
  - Drug intolerance [Recovered/Resolved]
